FAERS Safety Report 13259435 (Version 2)
Quarter: 2017Q1

REPORT INFORMATION
  Report Type: Spontaneous
  Country: US (occurrence: US)
  Receive Date: 20170222
  Receipt Date: 20170327
  Transmission Date: 20170428
  Serious: No
  Sender: FDA-Public Use
  Company Number: US-PFIZER INC-2017079027

PATIENT
  Age: 82 Year
  Sex: Female
  Weight: 78.2 kg

DRUGS (5)
  1. LYRICA [Suspect]
     Active Substance: PREGABALIN
     Indication: NEUROPATHY PERIPHERAL
     Dosage: 150 MG, 2X/DAY
  2. VITAMIN B12 [Concomitant]
     Active Substance: CYANOCOBALAMIN
     Indication: VITAMIN B12 DEFICIENCY
     Dosage: 1 SHOT INTO MUSCLE ONCE A MONTH
     Route: 030
  3. LYRICA [Suspect]
     Active Substance: PREGABALIN
     Dosage: EVERY 2-3 NIGHTS SKIP NIGHTTIME OR DAY DOSE
     Dates: start: 201612
  4. LYRICA [Suspect]
     Active Substance: PREGABALIN
     Dosage: 100 MG, 2X/DAY
     Dates: start: 201701
  5. LYRICA [Suspect]
     Active Substance: PREGABALIN
     Dosage: STRETCH OUT DOSE
     Dates: start: 201701

REACTIONS (4)
  - Intentional product use issue [Unknown]
  - Feeling abnormal [Unknown]
  - Pain [Unknown]
  - Poor quality sleep [Unknown]

NARRATIVE: CASE EVENT DATE: 201612
